FAERS Safety Report 5679617-2 (Version None)
Quarter: 2008Q1

REPORT INFORMATION
  Report Type: 
  Country: None (occurrence: None)
  Receive Date: 20080325
  Receipt Date: 20080317
  Transmission Date: 20080703
  Serious: Yes (Other)
  Sender: FDA-Public Use
  Company Number: FR-PFIZER INC-2008025417

PATIENT
  Age: 59 Year
  Sex: Female

DRUGS (1)
  1. XALATAN [Suspect]

REACTIONS (1)
  - MALIGNANT MELANOMA [None]
